FAERS Safety Report 6633202-4 (Version None)
Quarter: 2010Q1

REPORT INFORMATION
  Report Type: 
  Country: None (occurrence: None)
  Receive Date: 20100312
  Receipt Date: 20100308
  Transmission Date: 20100710
  Serious: Yes (Death, Hospitalization)
  Sender: FDA-Public Use
  Company Number: PHHY2010US08229

PATIENT
  Sex: Male

DRUGS (2)
  1. GLEEVEC [Suspect]
     Indication: ACUTE MYELOID LEUKAEMIA (IN REMISSION)
     Dosage: 400 MG, QD
     Route: 048
     Dates: start: 20090724
  2. EXJADE [Suspect]
     Dosage: 1500 MG DAILY
     Route: 048
     Dates: start: 20090130, end: 20091229

REACTIONS (5)
  - ABASIA [None]
  - CONFUSIONAL STATE [None]
  - DEATH [None]
  - INFECTION [None]
  - PYREXIA [None]
